FAERS Safety Report 10912952 (Version 1)
Quarter: 2015Q1

REPORT INFORMATION
  Report Type: Spontaneous
  Country: RS (occurrence: None)
  Receive Date: 20150310
  Receipt Date: 20150310
  Transmission Date: 20150721
  Serious: Yes (Other)
  Sender: FDA-Public Use
  Company Number: 1565326

PATIENT
  Age: 64 Year
  Sex: Male

DRUGS (4)
  1. CHLORPROMAZINE [Concomitant]
     Active Substance: CHLORPROMAZINE
  2. LORAZEPAM. [Concomitant]
     Active Substance: LORAZEPAM
  3. ERYTHROMYCIN STEARATE [Suspect]
     Active Substance: ERYTHROMYCIN STEARATE
     Indication: BRONCHITIS
  4. FLUPHENAZINE [Concomitant]
     Active Substance: FLUPHENAZINE

REACTIONS (6)
  - Delusion [None]
  - Psychomotor hyperactivity [None]
  - Psychiatric decompensation [None]
  - Hallucination, auditory [None]
  - Schizophrenia [None]
  - Mania [None]
